FAERS Safety Report 9653635 (Version 3)
Quarter: 2013Q4

REPORT INFORMATION
  Report Type: Spontaneous
  Country: JP (occurrence: JP)
  Receive Date: 20131029
  Receipt Date: 20131129
  Transmission Date: 20140711
  Serious: Yes (Hospitalization, Disabling, Other)
  Sender: FDA-Public Use
  Company Number: JP-TAKEDA-TCI2013A00985

PATIENT
  Age: 72 Year
  Sex: Male
  Weight: 75 kg

DRUGS (6)
  1. NESINA TABLETS 25MG [Suspect]
     Indication: DIABETES MELLITUS
     Dosage: 25 MG, QD
     Route: 048
     Dates: start: 20120815, end: 20130212
  2. AMARYL [Concomitant]
     Indication: DIABETES MELLITUS
     Dosage: 1 MG, QD
     Route: 048
     Dates: start: 20060715, end: 20130212
  3. ALOSENN                            /00476901/ [Concomitant]
     Indication: CONSTIPATION
     Dosage: 0.5 G, QD
     Route: 048
     Dates: start: 20060107, end: 20130212
  4. OLMETEC [Concomitant]
     Indication: HYPERTENSION
     Dosage: 40 MG, QD
     Route: 048
     Dates: start: 20070922, end: 20130212
  5. LIPIDIL [Concomitant]
     Indication: HYPERLIPIDAEMIA
     Dosage: 106.6 MG, QD
     Route: 048
     Dates: start: 20071114, end: 20130212
  6. CONIEL [Concomitant]
     Indication: HYPERTENSION
     Dosage: 4 MG, QD
     Route: 048
     Dates: start: 20080910, end: 20130212

REACTIONS (4)
  - Immune thrombocytopenic purpura [Recovered/Resolved]
  - Cerebral infarction [Recovered/Resolved with Sequelae]
  - Hemiplegia [Recovered/Resolved with Sequelae]
  - Dysarthria [Recovered/Resolved with Sequelae]
